FAERS Safety Report 26037644 (Version 2)
Quarter: 2025Q4

REPORT INFORMATION
  Report Type: Spontaneous
  Country: CA (occurrence: CA)
  Receive Date: 20251112
  Receipt Date: 20251116
  Transmission Date: 20260118
  Serious: Yes (Other)
  Sender: JOHNSON AND JOHNSON
  Company Number: CA-JNJFOC-20251147532

PATIENT
  Age: 24 Year
  Sex: Male

DRUGS (1)
  1. INFLIXIMAB [Suspect]
     Active Substance: INFLIXIMAB
     Indication: Colitis ulcerative
     Route: 041

REACTIONS (7)
  - Acne [Unknown]
  - C-reactive protein increased [Unknown]
  - Clostridium difficile infection [Unknown]
  - Diarrhoea [Unknown]
  - Haemorrhage [Unknown]
  - Loss of therapeutic response [Unknown]
  - Pain [Unknown]
